FAERS Safety Report 7394702-5 (Version None)
Quarter: 2011Q2

REPORT INFORMATION
  Report Type: 
  Country: None (occurrence: None)
  Receive Date: 20110405
  Receipt Date: 20110322
  Transmission Date: 20111010
  Serious: Yes (Other)
  Sender: FDA-Public Use
  Company Number: PHHY2011IT24054

PATIENT
  Age: 22 Year
  Sex: Male

DRUGS (5)
  1. CORTICOSTEROID NOS [Concomitant]
  2. PREDNISONE [Concomitant]
     Dosage: } 20 MG/DAY
  3. AZATHIOPRINE [Suspect]
  4. CYCLOSPORINE [Suspect]
     Dosage: 5 MG/KG,
  5. METHOTREXATE [Suspect]
     Dosage: 20 MG,

REACTIONS (3)
  - RENAL IMPAIRMENT [None]
  - TRANSAMINASES INCREASED [None]
  - NEPHROLITHIASIS [None]
